FAERS Safety Report 24676632 (Version 1)
Quarter: 2024Q4

REPORT INFORMATION
  Report Type: Spontaneous
  Country: US (occurrence: US)
  Receive Date: 20241128
  Receipt Date: 20241128
  Transmission Date: 20250115
  Serious: No
  Sender: AMGEN
  Company Number: US-AMGEN-USASP2024235080

PATIENT
  Sex: Female

DRUGS (1)
  1. TEPEZZA [Suspect]
     Active Substance: TEPROTUMUMAB-TRBW
     Indication: Toxic goitre
     Dosage: 580 MILLIGRAM, Q3WK, (WEEK 0: 580MG PIV X1 DOSE. WEEK 3: 1160MG PIV Q3WK X 7 DOSES )
     Route: 040
     Dates: start: 20241109

REACTIONS (1)
  - Tinnitus [Not Recovered/Not Resolved]
